FAERS Safety Report 23357692 (Version 1)
Quarter: 2024Q1

REPORT INFORMATION
  Report Type: Report from Study
  Country: US (occurrence: US)
  Receive Date: 20240102
  Receipt Date: 20240102
  Transmission Date: 20240410
  Serious: Yes (Hospitalization)
  Sender: FDA-Public Use
  Company Number: US-PFIZER INC-202300376581

PATIENT
  Age: 79 Year
  Sex: Female

DRUGS (11)
  1. MEKTOVI [Suspect]
     Active Substance: BINIMETINIB
     Dosage: 45 MG, 2X/DAY (TAKE 3 TABLETS BY MOUTH TWICE A DAY)
     Route: 048
     Dates: start: 20231108
  2. MEKTOVI [Suspect]
     Active Substance: BINIMETINIB
     Dosage: TAKE 3 TABLETS BY MOUTH TWICE A DAY
     Route: 048
  3. BRAFTOVI [Suspect]
     Active Substance: ENCORAFENIB
     Dosage: TAKE 6 CAPSULES BY MOUTH DAILY
     Route: 048
     Dates: start: 20231108
  4. CALCIUM [Concomitant]
     Active Substance: CALCIUM
     Dosage: 500 MG
  5. CELLULOSE [Concomitant]
     Active Substance: POWDERED CELLULOSE
     Dosage: UNK
  6. DELSYM [Concomitant]
     Active Substance: DEXTROMETHORPHAN
     Dosage: 30 MG/5 ML
  7. GUAIFENESIN [Concomitant]
     Active Substance: GUAIFENESIN
     Dosage: 100-10MG
  8. LICORICE [Concomitant]
     Active Substance: LICORICE
     Dosage: UNK
  9. MAGNESIUM [Concomitant]
     Active Substance: MAGNESIUM
     Dosage: 400 MG
  10. FISH OIL [Concomitant]
     Active Substance: FISH OIL
     Dosage: 1200 MG
  11. TYLENOL [Concomitant]
     Active Substance: ACETAMINOPHEN
     Dosage: 325 MG

REACTIONS (11)
  - Nausea [Unknown]
  - Diarrhoea [Unknown]
  - Vomiting [Unknown]
  - Gastritis [Unknown]
  - Enteritis [Unknown]
  - Feeding disorder [Unknown]
  - Abdominal pain upper [Unknown]
  - Abdominal discomfort [Unknown]
  - Therapeutic response unexpected [Unknown]
  - Fibromyalgia [Unknown]
  - Burning sensation [Unknown]
